FAERS Safety Report 4881813-9 (Version None)
Quarter: 2006Q1

REPORT INFORMATION
  Report Type: 
  Country: None (occurrence: None)
  Receive Date: 20060112
  Receipt Date: 20060112
  Transmission Date: 20060701
  Serious: Yes (Hospitalization)
  Sender: FDA-Public Use
  Company Number: None

PATIENT
  Sex: Male

DRUGS (1)
  1. HALOPERIDOL [Suspect]
     Indication: SCHIZOPHRENIA
     Dosage: 10-40 MG Q 30 MIN IV
     Route: 042
     Dates: start: 20051201, end: 20051202

REACTIONS (2)
  - ARRHYTHMIA [None]
  - TORSADE DE POINTES [None]
